FAERS Safety Report 23093971 (Version 1)
Quarter: 2023Q4

REPORT INFORMATION
  Report Type: Spontaneous
  Country: CA (occurrence: CA)
  Receive Date: 20231023
  Receipt Date: 20231023
  Transmission Date: 20240110
  Serious: Yes (Other)
  Sender: FDA-Public Use
  Company Number: None

PATIENT
  Age: 8 Year
  Sex: Male

DRUGS (3)
  1. NORDITROPIN [Suspect]
     Active Substance: SOMATROPIN
     Indication: Growth hormone deficiency
     Dosage: 1.0 DOSAGE FORMS
     Route: 058
  2. HUMATROPE [Concomitant]
     Active Substance: SOMATROPIN
     Dosage: 1.0 DOSAGE FORMS
  3. PREDNISOLONE SODIUM PHOSPHATE [Concomitant]
     Active Substance: PREDNISOLONE SODIUM PHOSPHATE
     Dosage: 1.0 DOSAGE FORMS

REACTIONS (1)
  - Bone graft [Recovering/Resolving]
